FAERS Safety Report 20768273 (Version 1)
Quarter: 2022Q2

REPORT INFORMATION
  Report Type: Report from Study
  Country: US (occurrence: US)
  Receive Date: 20220429
  Receipt Date: 20220429
  Transmission Date: 20220721
  Serious: Yes (Other)
  Sender: FDA-Public Use
  Company Number: US-JNJFOC-20220351136

PATIENT
  Sex: Female

DRUGS (1)
  1. PONESIMOD [Suspect]
     Active Substance: PONESIMOD
     Indication: Product used for unknown indication
     Route: 048
     Dates: start: 20220305, end: 20220406

REACTIONS (16)
  - Central nervous system lesion [Unknown]
  - Chest pain [Not Recovered/Not Resolved]
  - Arthralgia [Not Recovered/Not Resolved]
  - Back pain [Not Recovered/Not Resolved]
  - Ligament sprain [Not Recovered/Not Resolved]
  - Fall [Unknown]
  - Hypoaesthesia [Unknown]
  - Gait disturbance [Unknown]
  - Arthropathy [Unknown]
  - Motor dysfunction [Unknown]
  - Sensory disturbance [Unknown]
  - Insomnia [Unknown]
  - Palpitations [Unknown]
  - Extrasystoles [Unknown]
  - Asthenia [Unknown]
  - Pain of skin [Unknown]

NARRATIVE: CASE EVENT DATE: 20220305
